FAERS Safety Report 4300370-9 (Version None)
Quarter: 2004Q1

REPORT INFORMATION
  Report Type: 
  Country: None (occurrence: None)
  Receive Date: 20040220
  Receipt Date: 20040219
  Transmission Date: 20041129
  Serious: Yes (Hospitalization)
  Sender: FDA-Public Use
  Company Number: US-GLAXOSMITHKLINE-A0498870A

PATIENT
  Age: 40 Year
  Sex: Female

DRUGS (1)
  1. IMITREX [Suspect]
     Indication: MIGRAINE
     Route: 045
     Dates: start: 20010101

REACTIONS (2)
  - ARTERY DISSECTION [None]
  - CEREBROVASCULAR ACCIDENT [None]
